FAERS Safety Report 21636253 (Version 4)
Quarter: 2023Q1

REPORT INFORMATION
  Report Type: Spontaneous
  Country: JP (occurrence: JP)
  Receive Date: 20221124
  Receipt Date: 20230227
  Transmission Date: 20230418
  Serious: Yes (Other)
  Sender: FDA-Public Use
  Company Number: JP-002147023-NVSJ2022JP101562

PATIENT
  Age: 45 Year
  Sex: Female
  Weight: 80.6 kg

DRUGS (9)
  1. AZOPT [Suspect]
     Active Substance: BRINZOLAMIDE
     Indication: Glaucoma
     Dosage: 1 DROP, BID
     Route: 047
     Dates: start: 2008, end: 20230126
  2. METFORMIN HYDROCHLORIDE\VILDAGLIPTIN [Suspect]
     Active Substance: METFORMIN HYDROCHLORIDE\VILDAGLIPTIN
     Indication: Type 2 diabetes mellitus
     Dosage: 1 DOSAGE FORM, METFORMIN HYDROCHLORIDE 500MG/ VILDAGLIPTIN 50MG,  BID
     Route: 048
     Dates: start: 20220922
  3. AZELNIDIPINE\OLMESARTAN MEDOXOMIL [Suspect]
     Active Substance: AZELNIDIPINE\OLMESARTAN MEDOXOMIL
     Indication: Hypertension
     Dosage: 1 DOSAGE FORM (20 MG/16 MG AS OLMESARTAN MEDOXOMIL/AZELNIDIPINE), QD
     Route: 048
     Dates: start: 20220310
  4. AZELNIDIPINE\OLMESARTAN MEDOXOMIL [Suspect]
     Active Substance: AZELNIDIPINE\OLMESARTAN MEDOXOMIL
     Indication: Hypertension
     Dosage: 1 DOSAGE FORM (10 MG/8 MG AS OLMESARTAN MEDOXOMIL/AZELNIDIPINE), QD
     Route: 048
     Dates: start: 20190521, end: 20220310
  5. IPRAGLIFLOZIN L-PROLINE [Suspect]
     Active Substance: IPRAGLIFLOZIN L-PROLINE
     Indication: Diabetes mellitus
     Dosage: 1 DOSAGE FORM, QD
     Route: 048
     Dates: start: 20200430, end: 20220922
  6. LIVALO [Suspect]
     Active Substance: PITAVASTATIN CALCIUM
     Indication: Hypercholesterolaemia
     Dosage: 1 MG, QD
     Route: 048
     Dates: start: 20170718
  7. DOXAZOSIN MESYLATE [Concomitant]
     Active Substance: DOXAZOSIN MESYLATE
     Indication: Hypertension
     Dosage: 1 DOSAGE FORM, QD
     Route: 048
  8. ALOGLIPTIN BENZOATE\METFORMIN HYDROCHLORIDE [Concomitant]
     Active Substance: ALOGLIPTIN BENZOATE\METFORMIN HYDROCHLORIDE
     Indication: Diabetes mellitus
     Dosage: 1 DOSAGE FORM, QD
     Route: 048
     Dates: start: 20180820, end: 20220922
  9. ASPIRIN [Concomitant]
     Active Substance: ASPIRIN
     Indication: Retinal vascular occlusion
     Dosage: 100 MG, QD
     Route: 048
     Dates: start: 2008

REACTIONS (3)
  - Renal impairment [Not Recovered/Not Resolved]
  - Diabetic nephropathy [Unknown]
  - Hypercholesterolaemia [Unknown]

NARRATIVE: CASE EVENT DATE: 20210101
